FAERS Safety Report 9176702 (Version 1)
Quarter: 2013Q1

REPORT INFORMATION
  Report Type: Spontaneous
  Country: US (occurrence: None)
  Receive Date: 20130320
  Receipt Date: 20130320
  Transmission Date: 20140127
  Serious: No
  Sender: FDA-Public Use
  Company Number: None

PATIENT
  Sex: Male

DRUGS (1)
  1. EXJADE [Suspect]
     Indication: IRON OVERLOAD
     Dates: start: 20120515

REACTIONS (8)
  - Tongue blistering [None]
  - Tongue disorder [None]
  - Oral mucosal blistering [None]
  - Buccal mucosal roughening [None]
  - Pain [None]
  - Tenderness [None]
  - Stomatitis [None]
  - Glossodynia [None]
